FAERS Safety Report 23960582 (Version 2)
Quarter: 2024Q3

REPORT INFORMATION
  Report Type: Spontaneous
  Country: JP (occurrence: MA)
  Receive Date: 20240611
  Receipt Date: 20240712
  Transmission Date: 20241017
  Serious: Yes (Life-Threatening, Other)
  Sender: RANBAXY
  Company Number: JP-SUN PHARMACEUTICAL INDUSTRIES LTD-2024RR-450753

PATIENT
  Age: 26 Year
  Sex: Female

DRUGS (6)
  1. LIORESAL [Suspect]
     Active Substance: BACLOFEN
     Indication: Dystonia
     Dosage: UNK
     Route: 048
  2. METRONIDAZOLE [Suspect]
     Active Substance: METRONIDAZOLE
     Indication: Diarrhoea
     Dosage: 500 MILLIGRAM, TID, OCCASIONALLY
     Route: 048
  3. TRIHEXYPHENIDYL [Suspect]
     Active Substance: TRIHEXYPHENIDYL
     Indication: Dystonia
     Dosage: UNK
     Route: 048
  4. DIAZEPAM [Suspect]
     Active Substance: DIAZEPAM
     Indication: Dystonia
     Dosage: UNK
     Route: 040
  5. ACETAMINOPHEN [Suspect]
     Active Substance: ACETAMINOPHEN
     Indication: Pain
     Dosage: UNK
     Route: 040
  6. NEFOPAM [Suspect]
     Active Substance: NEFOPAM
     Indication: Pain
     Dosage: UNK
     Route: 065

REACTIONS (14)
  - Pneumonia aspiration [Unknown]
  - Toxic encephalopathy [Unknown]
  - Neurotoxicity [Unknown]
  - Weight decreased [Unknown]
  - Asthenia [Unknown]
  - Decreased appetite [Unknown]
  - Mental status changes [Unknown]
  - Dystonia [Unknown]
  - Mutism [Unknown]
  - Hallucination, auditory [Unknown]
  - Headache [Unknown]
  - Diplopia [Unknown]
  - Vertigo [Unknown]
  - Vomiting [Unknown]
